FAERS Safety Report 9220210 (Version 2)
Quarter: 2013Q2

REPORT INFORMATION
  Report Type: Spontaneous
  Country: FR (occurrence: FR)
  Receive Date: 20130409
  Receipt Date: 20130510
  Transmission Date: 20140414
  Serious: Yes (Hospitalization)
  Sender: FDA-Public Use
  Company Number: FR-PFIZER INC-2013104902

PATIENT
  Age: 75 Year
  Sex: Male

DRUGS (11)
  1. VFEND [Suspect]
     Indication: BRONCHOPULMONARY ASPERGILLOSIS
     Dosage: 250 MG, 2X/DAY
     Route: 048
     Dates: start: 20130118, end: 20130128
  2. VFEND [Suspect]
     Dosage: UNK
     Dates: start: 20130228, end: 20130313
  3. KABIVEN [Suspect]
     Indication: MALNUTRITION
     Dosage: 1540 ML, DAILY
     Route: 042
     Dates: start: 20130118, end: 20130201
  4. LASILIX [Concomitant]
  5. KARDEGIC [Concomitant]
  6. TAHOR [Concomitant]
  7. CIBACENE [Concomitant]
  8. NOCTAMID [Concomitant]
  9. SERETIDE DISKUS [Concomitant]
  10. SPIRIVA [Concomitant]
  11. BETAMETHASONE [Concomitant]

REACTIONS (3)
  - Lactescent serum [Recovered/Resolved]
  - Hepatocellular injury [Recovered/Resolved]
  - Cholestasis [Recovered/Resolved]
